FAERS Safety Report 9106475 (Version 1)
Quarter: 2013Q1

REPORT INFORMATION
  Report Type: Report from Study
  Country: JP (occurrence: JP)
  Receive Date: 20130221
  Receipt Date: 20130221
  Transmission Date: 20140127
  Serious: Yes (Hospitalization)
  Sender: FDA-Public Use
  Company Number: JP-PFIZER INC-2013062667

PATIENT
  Age: 84 Year
  Sex: Male

DRUGS (2)
  1. ESTRACYT [Suspect]
     Indication: PROSTATE CANCER
     Dosage: 313.4 MG, 1X/DAY
     Route: 048
     Dates: start: 20120618, end: 20120716
  2. ZOLADEX LA [Concomitant]
     Dosage: UNK
     Dates: start: 20061117

REACTIONS (1)
  - Pleural effusion [Recovering/Resolving]
